FAERS Safety Report 5346022-8 (Version None)
Quarter: 2007Q2

REPORT INFORMATION
  Report Type: 
  Country: None (occurrence: None)
  Receive Date: 20070426
  Receipt Date: 20061114
  Transmission Date: 20071010
  Serious: Yes (Other)
  Sender: FDA-Public Use
  Company Number: US-JNJFOC-20060904607

PATIENT
  Age: 65 Year
  Sex: Female
  Weight: 104.3273 kg

DRUGS (4)
  1. RAZADYNE [Suspect]
     Indication: MEMORY IMPAIRMENT
     Dosage: 4 MG, 2 IN 1 DAY, ORAL
     Route: 048
     Dates: start: 20060913, end: 20060917
  2. ZALATAN (LATANOPROST) DROPS [Concomitant]
  3. SYNTHROID (LEVOTHYROXINE SODIUM) TABLET [Concomitant]
  4. ZETIA (CHOLESTEROL- AND TRIGLYCERIDE REDUCERS) TABLET [Concomitant]

REACTIONS (1)
  - BLOOD PRESSURE INCREASED [None]
